FAERS Safety Report 13273662 (Version 1)
Quarter: 2017Q1

REPORT INFORMATION
  Report Type: Spontaneous
  Country: FR (occurrence: FR)
  Receive Date: 20170227
  Receipt Date: 20170227
  Transmission Date: 20170428
  Serious: Yes (Other)
  Sender: FDA-Public Use
  Company Number: FR-009507513-1611FRA010066

PATIENT
  Age: 23 Year

DRUGS (6)
  1. SIROLIMUS. [Interacting]
     Active Substance: SIROLIMUS
     Dosage: 5 MG TWICE A WEEK
  2. NOXAFIL [Suspect]
     Active Substance: POSACONAZOLE
     Indication: ANTIFUNGAL PROPHYLAXIS
     Dosage: 600 MG LOADING DOSE ON THE FIRST DAY
     Route: 048
  3. NOXAFIL [Interacting]
     Active Substance: POSACONAZOLE
     Dosage: 600 MG LOADING DOSE ON THE FIRST DAY
     Route: 048
  4. SIROLIMUS. [Interacting]
     Active Substance: SIROLIMUS
     Indication: INFECTION PROPHYLAXIS
     Dosage: 5 MG, QD
  5. NOXAFIL [Interacting]
     Active Substance: POSACONAZOLE
     Dosage: 200 MG QD ON THE 14TH DAY OF TREATMENT
     Route: 048
  6. SIROLIMUS. [Interacting]
     Active Substance: SIROLIMUS
     Dosage: 3 MG TWICE A WEEK

REACTIONS (2)
  - Drug interaction [Not Recovered/Not Resolved]
  - Blood creatinine increased [Unknown]
